FAERS Safety Report 21945505 (Version 1)
Quarter: 2023Q1

REPORT INFORMATION
  Report Type: Other
  Country: US (occurrence: None)
  Receive Date: 20230202
  Receipt Date: 20230202
  Transmission Date: 20230418
  Serious: No
  Sender: FDA-Public Use
  Company Number: US-ROCHE-3276156

PATIENT
  Age: 27 Year
  Sex: Female
  Weight: 88.984 kg

DRUGS (2)
  1. OCREVUS [Suspect]
     Active Substance: OCRELIZUMAB
     Indication: Relapsing-remitting multiple sclerosis
     Dosage: THEN 600 MG EVERY 6 MONTHS. LAST OCRELIZUMAB INFUSION WAS ON OCT/2021
     Route: 042
  2. ERGOCALCIFEROL [Concomitant]
     Active Substance: ERGOCALCIFEROL
     Route: 048

REACTIONS (5)
  - Hepatic enzyme increased [Unknown]
  - Varicella zoster virus infection [Unknown]
  - Antibody test positive [Unknown]
  - Vitamin D deficiency [Unknown]
  - Lumbosacral radiculopathy [Unknown]

NARRATIVE: CASE EVENT DATE: 20220520
